FAERS Safety Report 10046942 (Version 2)
Quarter: 2014Q1

REPORT INFORMATION
  Report Type: Spontaneous
  Country: CA (occurrence: CA)
  Receive Date: 20140331
  Receipt Date: 20140331
  Transmission Date: 20141002
  Serious: Yes (Other)
  Sender: FDA-Public Use
  Company Number: CA-AMGEN-CANSP2014020985

PATIENT
  Age: 90 Year
  Sex: Female
  Weight: 63.49 kg

DRUGS (1)
  1. ENBREL [Suspect]
     Indication: RHEUMATOID ARTHRITIS
     Dosage: 50 MG, QWK
     Route: 065
     Dates: start: 2010

REACTIONS (9)
  - Glaucoma [Unknown]
  - Rheumatoid arthritis [Not Recovered/Not Resolved]
  - Skin cancer [Unknown]
  - Eczema [Unknown]
  - Cough [Not Recovered/Not Resolved]
  - Rubber sensitivity [Not Recovered/Not Resolved]
  - Joint swelling [Unknown]
  - Ear pain [Unknown]
  - Eye irritation [Unknown]
